FAERS Safety Report 14518111 (Version 7)
Quarter: 2018Q2

REPORT INFORMATION
  Report Type: Report from Study
  Country: RU (occurrence: RU)
  Receive Date: 20180212
  Receipt Date: 20180626
  Transmission Date: 20180711
  Serious: Yes (Other)
  Sender: FDA-Public Use
  Company Number: RU-ROCHE-2066912

PATIENT
  Age: 68 Year
  Sex: Female
  Weight: 71 kg

DRUGS (12)
  1. ACID FOLIC [Concomitant]
     Active Substance: FOLIC ACID
  2. PARACETAMOLUM [Concomitant]
     Active Substance: ACETAMINOPHEN
     Indication: PROPHYLAXIS
     Route: 065
     Dates: start: 20180115, end: 20180116
  3. OMEPRAZOLUM [Concomitant]
     Indication: PROPHYLAXIS
     Route: 065
     Dates: start: 20180115
  4. ACICLOVIRUM [Concomitant]
     Indication: PROPHYLAXIS
     Route: 065
     Dates: start: 20180115
  5. NATRII CHLORIDI [Concomitant]
     Route: 065
     Dates: start: 20180129, end: 20180130
  6. OBINUTUZUMAB. [Suspect]
     Active Substance: OBINUTUZUMAB
     Indication: WALDENSTROM^S MACROGLOBULINAEMIA
     Dosage: OBINUTUZUMAB 1000 MG WILL ALSO BE ADMINISTERED ON DAYS 8 AND 15 OF THE FIRST CYCLE ONLY?MOST RECENT
     Route: 042
     Dates: start: 20180115
  7. NATRII CHLORIDI [Concomitant]
     Route: 065
     Dates: start: 20180122, end: 20180126
  8. ATEZOLIZUMAB. [Suspect]
     Active Substance: ATEZOLIZUMAB
     Indication: WALDENSTROM^S MACROGLOBULINAEMIA
     Dosage: MOST RECENT DOSE PRIOR TO AE ONSET ON 15/JAN/2018 AT 15:30
     Route: 042
     Dates: start: 20180115
  9. ALLOPURINOLUM [Concomitant]
     Indication: PROPHYLAXIS
     Route: 065
     Dates: start: 20180115
  10. FILGRASTIM [Concomitant]
     Active Substance: FILGRASTIM
     Indication: LEUKOPENIA
     Route: 065
     Dates: start: 20180126, end: 20180126
  11. PARACETAMOLUM [Concomitant]
     Active Substance: ACETAMINOPHEN
     Route: 065
     Dates: start: 20180122, end: 20180122
  12. NATRII CHLORIDI [Concomitant]
     Indication: PROPHYLAXIS
     Route: 065
     Dates: start: 20180115, end: 20180119

REACTIONS (1)
  - Hepatitis toxic [Recovered/Resolved]

NARRATIVE: CASE EVENT DATE: 20180129
